FAERS Safety Report 9012626 (Version 1)
Quarter: 2013Q1

REPORT INFORMATION
  Report Type: Spontaneous
  Country: GB (occurrence: GB)
  Receive Date: 20130114
  Receipt Date: 20130114
  Transmission Date: 20140127
  Serious: Yes (Disabling)
  Sender: FDA-Public Use
  Company Number: PHHY2013GB001980

PATIENT
  Age: 70 Year
  Sex: Male
  Weight: 86 kg

DRUGS (5)
  1. SIMVASTATIN [Suspect]
     Indication: CARDIOVASCULAR EVENT PROPHYLAXIS
     Dosage: 20 MG, UNK
     Route: 048
  2. WARFARIN [Concomitant]
  3. TERAZOSIN [Concomitant]
  4. PERINDOPRIL [Concomitant]
  5. BISOPROLOL [Concomitant]

REACTIONS (3)
  - Activities of daily living impaired [Recovering/Resolving]
  - Depressed mood [Recovering/Resolving]
  - Anhedonia [Recovering/Resolving]
